FAERS Safety Report 6890159-9 (Version None)
Quarter: 2010Q3

REPORT INFORMATION
  Report Type: 
  Country: None (occurrence: None)
  Receive Date: 20100730
  Receipt Date: 20080813
  Transmission Date: 20110219
  Serious: No
  Sender: FDA-Public Use
  Company Number: US-PFIZER INC-2008028266

PATIENT
  Sex: Male
  Weight: 72.12 kg

DRUGS (10)
  1. LIPITOR [Suspect]
     Indication: BLOOD CHOLESTEROL INCREASED
     Route: 048
     Dates: start: 20050301, end: 20080301
  2. CARBAMAZEPINE [Concomitant]
  3. VITAMIN D [Concomitant]
  4. DYNACIRC [Concomitant]
  5. LABETALOL HYDROCHLORIDE [Concomitant]
  6. COZAAR [Concomitant]
  7. TEGRETOL [Concomitant]
  8. TPN [Concomitant]
  9. FISH OIL [Concomitant]
  10. ASPIRIN [Concomitant]

REACTIONS (2)
  - BLOOD CHOLESTEROL INCREASED [None]
  - BLOOD CREATINE PHOSPHOKINASE INCREASED [None]
